FAERS Safety Report 18269266 (Version 1)
Quarter: 2020Q3

REPORT INFORMATION
  Report Type: Spontaneous
  Country: DZ (occurrence: DZ)
  Receive Date: 20200915
  Receipt Date: 20200915
  Transmission Date: 20201103
  Serious: Yes (Hospitalization, Other)
  Sender: FDA-Public Use
  Company Number: DZ-JAZZ-2020-DZ-000667

PATIENT
  Age: 5 Year
  Sex: Male

DRUGS (4)
  1. KIDROLASE [Suspect]
     Active Substance: ASPARAGINASE
     Indication: B-CELL TYPE ACUTE LEUKAEMIA
     Dosage: 18000 UI, 6 INJECTION, 1DAY/3
     Route: 042
     Dates: start: 20191202, end: 20200113
  2. CYCLOPHOSPHAMIDE. [Concomitant]
     Active Substance: CYCLOPHOSPHAMIDE
     Indication: B-CELL TYPE ACUTE LEUKAEMIA
     Dosage: 1 GRAM PER SQUARE METRE (ONE DOSE)
     Route: 042
     Dates: start: 20191223
  3. METHOTREXATE. [Concomitant]
     Active Substance: METHOTREXATE
     Indication: B-CELL TYPE ACUTE LEUKAEMIA
     Dosage: 5 GRAM PER SQUARE METRE (ONE DOSE)
     Route: 042
     Dates: start: 20191222
  4. VINCRISTINE [Concomitant]
     Active Substance: VINCRISTINE
     Indication: B-CELL TYPE ACUTE LEUKAEMIA
     Dosage: 1 MILLIGRAM (J8,J15,J 22,J36)
     Route: 042
     Dates: start: 20191128

REACTIONS (2)
  - Meningeal disorder [Unknown]
  - Hypersensitivity [Recovered/Resolved]

NARRATIVE: CASE EVENT DATE: 20200113
